FAERS Safety Report 13611328 (Version 1)
Quarter: 2017Q2

REPORT INFORMATION
  Report Type: Spontaneous
  Country: JP (occurrence: JP)
  Receive Date: 20170605
  Receipt Date: 20170605
  Transmission Date: 20170830
  Serious: Yes (Life-Threatening, Other)
  Sender: FDA-Public Use
  Company Number: JP-009507513-1705JPN002813J

PATIENT
  Age: 61 Year
  Sex: Male
  Weight: 42 kg

DRUGS (4)
  1. PREDONINE [Concomitant]
     Active Substance: PREDNISOLONE
     Indication: PROPHYLAXIS
     Dosage: 5 MG, BID
     Route: 048
     Dates: start: 20170403
  2. KEYTRUDA [Suspect]
     Active Substance: PEMBROLIZUMAB
     Indication: LUNG ADENOCARCINOMA
     Dosage: 200 MG, Q3W
     Route: 041
     Dates: start: 20170502, end: 20170523
  3. E KEPPRA [Concomitant]
     Active Substance: LEVETIRACETAM
     Indication: CONVULSION PROPHYLAXIS
     Dosage: 500 MG, BID
     Route: 048
     Dates: start: 20170403
  4. SAIBOKUTO [Concomitant]
     Active Substance: HERBALS
     Dosage: 7.5 G, TID
     Route: 048
     Dates: start: 20170403

REACTIONS (1)
  - Metastases to meninges [Not Recovered/Not Resolved]

NARRATIVE: CASE EVENT DATE: 20170523
